FAERS Safety Report 14901218 (Version 1)
Quarter: 2018Q2

REPORT INFORMATION
  Report Type: Spontaneous
  Country: DE (occurrence: DE)
  Receive Date: 20180516
  Receipt Date: 20180516
  Transmission Date: 20180711
  Serious: Yes (Hospitalization, Other)
  Sender: FDA-Public Use
  Company Number: DE-PFIZER INC-2018196026

PATIENT
  Age: 65 Year
  Sex: Female

DRUGS (1)
  1. LANTAREL [Suspect]
     Active Substance: METHOTREXATE SODIUM
     Dosage: 15 MG, DAILY

REACTIONS (8)
  - Dysphagia [Recovered/Resolved]
  - Encephalopathy [Recovered/Resolved]
  - Overdose [Unknown]
  - Product use issue [Unknown]
  - Coma [Recovered/Resolved]
  - Thrombocytopenia [Recovered/Resolved]
  - Leukopenia [Recovered/Resolved]
  - Pneumonia fungal [Recovered/Resolved]
